FAERS Safety Report 19969804 (Version 1)
Quarter: 2021Q4

REPORT INFORMATION
  Report Type: Spontaneous
  Country: US (occurrence: US)
  Receive Date: 20211019
  Receipt Date: 20211019
  Transmission Date: 20220303
  Serious: Yes (Other)
  Sender: FDA-Public Use
  Company Number: US-PFIZER INC-202101352676

PATIENT
  Age: 53 Year
  Sex: Female

DRUGS (6)
  1. VANCOMYCIN HYDROCHLORIDE [Suspect]
     Active Substance: VANCOMYCIN HYDROCHLORIDE
     Indication: Toxic shock syndrome streptococcal
     Dosage: UNK
  2. CEFEPIME HYDROCHLORIDE [Suspect]
     Active Substance: CEFEPIME HYDROCHLORIDE
     Indication: Toxic shock syndrome streptococcal
     Dosage: UNK
  3. DOBUTAMINE HYDROCHLORIDE [Suspect]
     Active Substance: DOBUTAMINE HYDROCHLORIDE
     Indication: Toxic shock syndrome streptococcal
     Dosage: UNK (ESCALATING DOSES)
  4. CLINDAMYCIN PALMITATE HYDROCHLORIDE [Suspect]
     Active Substance: CLINDAMYCIN PALMITATE HYDROCHLORIDE
     Indication: Toxic shock syndrome streptococcal
     Dosage: UNK
  5. NOREPINEPHRINE BITARTRATE [Suspect]
     Active Substance: NOREPINEPHRINE BITARTRATE
     Indication: Toxic shock syndrome streptococcal
     Dosage: UNK (ESCALATING DOSES)
  6. VASOPRESSIN [Suspect]
     Active Substance: VASOPRESSIN
     Indication: Toxic shock syndrome streptococcal
     Dosage: UNK (ESCALATING DOSES)

REACTIONS (3)
  - Septic shock [Unknown]
  - Beta haemolytic streptococcal infection [Unknown]
  - Drug ineffective [Unknown]
